FAERS Safety Report 8026091-7 (Version None)
Quarter: 2012Q1

REPORT INFORMATION
  Report Type: 
  Country: None (occurrence: None)
  Receive Date: 20120105
  Receipt Date: 20110607
  Transmission Date: 20120608
  Serious: No
  Sender: FDA-Public Use
  Company Number: US-ABBOTT-11P-163-0731195-00

PATIENT
  Sex: Female
  Weight: 122.58 kg

DRUGS (3)
  1. NADOLOL [Concomitant]
     Indication: MIGRAINE
  2. SYNTHROID [Suspect]
     Indication: HYPOTHYROIDISM
     Dates: end: 20090101
  3. SYNTHROID [Suspect]
     Indication: BASEDOW'S DISEASE
     Dates: start: 20090101

REACTIONS (6)
  - DEPRESSION [None]
  - CONTUSION [None]
  - ACCIDENT AT WORK [None]
  - JOINT SWELLING [None]
  - INFECTION [None]
  - DRUG DOSE OMISSION [None]
